FAERS Safety Report 6920037-8 (Version None)
Quarter: 2010Q3

REPORT INFORMATION
  Report Type: 
  Country: None (occurrence: None)
  Receive Date: 20100730
  Receipt Date: 20090819
  Transmission Date: 20110219
  Serious: Yes (Hospitalization)
  Sender: FDA-Public Use
  Company Number: OMPQ-PR-0908S-0740

PATIENT
  Age: 49 Year
  Sex: Female
  Weight: 48.9885 kg

DRUGS (4)
  1. OMNIPAQUE 140 [Suspect]
     Indication: CARDIAC STRESS TEST
     Dosage: 40 ML, SINGLE DOSE, I.A.
     Route: 014
     Dates: start: 20090720, end: 20090720
  2. OMNIPAQUE 140 [Suspect]
     Indication: CHEST PAIN
     Dosage: 40 ML, SINGLE DOSE, I.A.
     Route: 014
     Dates: start: 20090720, end: 20090720
  3. OMNIPAQUE 140 [Suspect]
     Indication: DYSPNOEA
     Dosage: 40 ML, SINGLE DOSE, I.A.
     Route: 014
     Dates: start: 20090720, end: 20090720
  4. NALBUPHINE [Concomitant]

REACTIONS (2)
  - CHEST PAIN [None]
  - DYSPNOEA [None]
